FAERS Safety Report 8762745 (Version 1)
Quarter: 2012Q4

REPORT INFORMATION
  Report Type: 
  Country: US (occurrence: US)
  Receive Date: 20120830
  Receipt Date: 20120830
  Transmission Date: 20130627
  Serious: No
  Sender: FDA-Public Use
  Company Number: US-009507513-1208USA010712

PATIENT

DRUGS (6)
  1. JANUVIA [Suspect]
     Indication: TYPE 2 DIABETES MELLITUS
     Dosage: 100 mg, qd
     Route: 048
     Dates: start: 201203
  2. JANUVIA [Suspect]
     Dosage: 100 mg, qd
     Route: 048
     Dates: end: 20120815
  3. INSULIN [Concomitant]
  4. VITAMIN D (UNSPECIFIED) [Concomitant]
  5. TACROLIMUS [Concomitant]
  6. PREDNISONE [Concomitant]

REACTIONS (1)
  - Drug ineffective [Unknown]
